FAERS Safety Report 16200870 (Version 1)
Quarter: 2019Q2

REPORT INFORMATION
  Report Type: Spontaneous
  Country: US (occurrence: US)
  Receive Date: 20190416
  Receipt Date: 20190416
  Transmission Date: 20190711
  Serious: No
  Sender: FDA-Public Use
  Company Number: US-BION-007055

PATIENT
  Age: 72 Year
  Sex: Female
  Weight: 70 kg

DRUGS (4)
  1. COSOPT [Concomitant]
     Active Substance: DORZOLAMIDE HYDROCHLORIDE\TIMOLOL MALEATE
  2. TRAVATAN Z [Concomitant]
     Active Substance: TRAVOPROST
  3. ALEVE [Suspect]
     Active Substance: NAPROXEN SODIUM
     Indication: PAIN
     Dosage: 1 SOFT GEL ONCE OR TWICE DAILY
     Route: 048
     Dates: start: 2017
  4. INSULIN [Concomitant]
     Active Substance: INSULIN NOS

REACTIONS (1)
  - Incorrect product administration duration [Not Recovered/Not Resolved]

NARRATIVE: CASE EVENT DATE: 2017
